FAERS Safety Report 24377956 (Version 1)
Quarter: 2024Q3

REPORT INFORMATION
  Report Type: Spontaneous
  Country: US (occurrence: None)
  Receive Date: 20240927
  Receipt Date: 20240927
  Transmission Date: 20241016
  Serious: Yes (Hospitalization)
  Sender: Public
  Company Number: None

PATIENT
  Age: 69 Year
  Sex: Male
  Weight: 77 kg

DRUGS (1)
  1. LISINOPRIL [Suspect]
     Active Substance: LISINOPRIL
     Indication: Hypertension
     Dosage: 1.00 MG DAILY ORAL
     Route: 048
     Dates: end: 20231106

REACTIONS (2)
  - Angioedema [None]
  - Treatment noncompliance [None]

NARRATIVE: CASE EVENT DATE: 20231106
